FAERS Safety Report 14799692 (Version 1)
Quarter: 2018Q2

REPORT INFORMATION
  Report Type: Spontaneous
  Country: US (occurrence: US)
  Receive Date: 20180424
  Receipt Date: 20180424
  Transmission Date: 20180711
  Serious: No
  Sender: FDA-Public Use
  Company Number: PHEH2018US015346

PATIENT
  Age: 42 Year
  Sex: Female

DRUGS (12)
  1. VALACYCLOVIR [Concomitant]
     Active Substance: VALACYCLOVIR HYDROCHLORIDE
     Indication: ORAL PAIN
     Dosage: 500 MG, BID
     Route: 048
     Dates: start: 20151217
  2. XGEVA [Concomitant]
     Active Substance: DENOSUMAB
     Indication: BONE CANCER
     Dosage: UNK UNK, Q3MO (120 MG/1.7 ML)
     Route: 065
     Dates: start: 20151012
  3. BENZOCAINE. [Concomitant]
     Active Substance: BENZOCAINE
     Indication: ORAL PAIN
     Route: 065
  4. KIRKLAND SIGNATURE ALLERCLEAR [Concomitant]
     Active Substance: LORATADINE
     Indication: HYPERSENSITIVITY
     Dosage: 10 MG, QD
     Route: 048
  5. IBRANCE [Suspect]
     Active Substance: PALBOCICLIB
     Indication: BREAST CANCER STAGE IV
     Dosage: 125 MG, QD
     Route: 048
     Dates: start: 20170418
  6. VITAMIN D3 [Concomitant]
     Active Substance: CHOLECALCIFEROL
     Indication: VITAMIN D INCREASED
     Dosage: 2000 IU, QD
     Route: 048
  7. FISH OIL [Concomitant]
     Active Substance: FISH OIL
     Indication: DRY EYE
     Dosage: 1000 MG, QD (TWO SOFT GELS ONCE A DAY BY MOUTH)
     Route: 048
  8. SF 5000 PLUS [Concomitant]
     Active Substance: SODIUM FLUORIDE
     Indication: PRODUCT USED FOR UNKNOWN INDICATION
     Dosage: UNK (1.1 % SODIUM CHLORIDE)
     Route: 065
  9. CITRACAL [Concomitant]
     Active Substance: CALCIUM CITRATE
     Indication: BONE DISORDER
     Dosage: UNK UNK, QD ( 630 MG CALCIUM/ 500 IU OF VITAMIN D)
     Route: 048
     Dates: start: 201510
  10. LETROZOLE. [Suspect]
     Active Substance: LETROZOLE
     Indication: BREAST CANCER STAGE IV
     Dosage: 2.5 MG, QD
     Route: 048
     Dates: start: 20170411
  11. VALACYCLOVIR [Concomitant]
     Active Substance: VALACYCLOVIR HYDROCHLORIDE
     Indication: HERPES SIMPLEX
  12. FISH OIL [Concomitant]
     Active Substance: FISH OIL
     Indication: BONE DISORDER

REACTIONS (5)
  - Limb discomfort [Unknown]
  - Spinal osteoarthritis [Unknown]
  - Musculoskeletal stiffness [Recovering/Resolving]
  - Paraesthesia [Recovering/Resolving]
  - Neuropathy peripheral [Recovering/Resolving]

NARRATIVE: CASE EVENT DATE: 20180210
